FAERS Safety Report 13319378 (Version 1)
Quarter: 2017Q1

REPORT INFORMATION
  Report Type: Spontaneous
  Country: DE (occurrence: DE)
  Receive Date: 20170310
  Receipt Date: 20170310
  Transmission Date: 20170428
  Serious: Yes (Other)
  Sender: FDA-Public Use
  Company Number: PHHY2017DE034436

PATIENT
  Age: 88 Year
  Sex: Male

DRUGS (1)
  1. ENTRESTO [Suspect]
     Active Substance: SACUBITRIL\VALSARTAN
     Indication: PRODUCT USED FOR UNKNOWN INDICATION
     Dosage: 1 DF, BID
     Route: 065
     Dates: start: 20161006

REACTIONS (8)
  - Oedema [Recovering/Resolving]
  - Hypertension [Recovering/Resolving]
  - Aortic stenosis [Recovering/Resolving]
  - Pleural effusion [Recovering/Resolving]
  - Hyponatraemia [Recovering/Resolving]
  - Atrial fibrillation [Recovering/Resolving]
  - Cardiac aneurysm [Recovering/Resolving]
  - Cardiac failure [Recovering/Resolving]

NARRATIVE: CASE EVENT DATE: 20170208
